FAERS Safety Report 16437603 (Version 1)
Quarter: 2019Q2

REPORT INFORMATION
  Report Type: Report from Study
  Country: US (occurrence: US)
  Receive Date: 20190615
  Receipt Date: 20190615
  Transmission Date: 20190711
  Serious: Yes (Other)
  Sender: FDA-Public Use
  Company Number: US-UCBSA-2019025248

PATIENT
  Sex: Male

DRUGS (2)
  1. DEPOCORT [Concomitant]
     Indication: PRODUCT USED FOR UNKNOWN INDICATION
  2. BRIVARACETAM [Suspect]
     Active Substance: BRIVARACETAM
     Indication: SEIZURE
     Dosage: 150MG
     Dates: start: 201905, end: 20190601

REACTIONS (4)
  - Pruritus [Unknown]
  - Intellectual disability [Unknown]
  - Seizure [Unknown]
  - Anxiety [Unknown]

NARRATIVE: CASE EVENT DATE: 2019
